FAERS Safety Report 10133460 (Version 1)
Quarter: 2014Q2

REPORT INFORMATION
  Report Type: Spontaneous
  Country: US (occurrence: US)
  Receive Date: 20140428
  Receipt Date: 20140428
  Transmission Date: 20141212
  Serious: No
  Sender: FDA-Public Use
  Company Number: US-PFIZER INC-2014115080

PATIENT
  Age: 53 Year
  Sex: Female
  Weight: 63.5 kg

DRUGS (2)
  1. EFFEXOR XR [Suspect]
     Indication: MENOPAUSE
     Dosage: 37.5 MG, DAILY
  2. VENLAFAXINE HCL [Suspect]
     Indication: MENOPAUSE
     Dosage: 37.5 MG, DAILY

REACTIONS (1)
  - Hyperhidrosis [Unknown]
